FAERS Safety Report 24768639 (Version 1)
Quarter: 2024Q4

REPORT INFORMATION
  Report Type: Spontaneous
  Country: US (occurrence: US)
  Receive Date: 20241224
  Receipt Date: 20241224
  Transmission Date: 20250115
  Serious: Yes (Hospitalization, Other)
  Sender: NOVO NORDISK
  Company Number: US-NOVOPROD-1263350

PATIENT
  Age: 39 Year
  Sex: Female
  Weight: 117.4 kg

DRUGS (14)
  1. WEGOVY [Suspect]
     Active Substance: SEMAGLUTIDE
     Indication: Obesity
     Dosage: 1.7 MG, QW
     Route: 058
     Dates: start: 20230801, end: 20231202
  2. MOUNJARO [Suspect]
     Active Substance: TIRZEPATIDE
     Dosage: 10 MG, QW
     Route: 058
     Dates: start: 20230301, end: 20230315
  3. MOUNJARO [Suspect]
     Active Substance: TIRZEPATIDE
     Dosage: 2.5 MG, QW
     Route: 058
     Dates: end: 20230721
  4. MOUNJARO [Suspect]
     Active Substance: TIRZEPATIDE
     Dosage: 12.5 MG, QW
     Route: 058
     Dates: start: 20230418, end: 20230501
  5. MOUNJARO [Suspect]
     Active Substance: TIRZEPATIDE
     Dosage: 15 MG, QW
     Route: 058
     Dates: start: 20230323, end: 20230406
  6. MOUNJARO [Suspect]
     Active Substance: TIRZEPATIDE
     Indication: Obesity
     Dosage: 2.5 MG, QW
     Route: 058
     Dates: start: 20221109
  7. MOUNJARO [Suspect]
     Active Substance: TIRZEPATIDE
     Dosage: 7.5 MG, QW
     Route: 058
     Dates: end: 20230607
  8. MOUNJARO [Suspect]
     Active Substance: TIRZEPATIDE
     Dosage: 7.5 MG, QW
     Route: 058
     Dates: start: 20230103
  9. TRAMADOL [Concomitant]
     Active Substance: TRAMADOL
     Indication: Pain
     Dosage: UNK
     Dates: start: 20221001, end: 20221201
  10. METFORMIN [Concomitant]
     Active Substance: METFORMIN HYDROCHLORIDE
     Indication: Diabetes mellitus
     Dosage: UNK
     Dates: start: 20231022, end: 20231030
  11. PHENTERMINE [Concomitant]
     Active Substance: PHENTERMINE\PHENTERMINE HYDROCHLORIDE
     Indication: Decreased appetite
     Dosage: UNK
     Dates: start: 20220901
  12. TOPIRAMATE [Concomitant]
     Active Substance: TOPIRAMATE
     Indication: Anxiety
     Dosage: UNK
     Dates: start: 20230213
  13. OMEPRAZOLE [Concomitant]
     Active Substance: OMEPRAZOLE
     Indication: Gastrooesophageal reflux disease
     Dosage: UNK
     Dates: start: 20230901, end: 20231130
  14. VITAMINS [Concomitant]
     Active Substance: VITAMINS
     Indication: Routine health maintenance
     Dosage: UNK
     Dates: start: 20220101

REACTIONS (7)
  - Dehydration [Not Recovered/Not Resolved]
  - Decreased appetite [Not Recovered/Not Resolved]
  - Impaired gastric emptying [Not Recovered/Not Resolved]
  - Dyspepsia [Not Recovered/Not Resolved]
  - Nausea [Not Recovered/Not Resolved]
  - Inappropriate schedule of product administration [Unknown]
  - Product use issue [Unknown]

NARRATIVE: CASE EVENT DATE: 20230201
